FAERS Safety Report 5359206-X (Version None)
Quarter: 2007Q2

REPORT INFORMATION
  Report Type: 
  Country: None (occurrence: None)
  Receive Date: 20070615
  Receipt Date: 20070606
  Transmission Date: 20071010
  Serious: Yes (Other)
  Sender: FDA-Public Use
  Company Number: US-GILEAD-2007-0012398

PATIENT
  Age: 27 Year
  Sex: Female

DRUGS (3)
  1. ATRIPLA [Suspect]
     Indication: HIV INFECTION
     Route: 048
     Dates: start: 20061128
  2. ZIDOVUDINE [Concomitant]
     Indication: HIV INFECTION
     Route: 042
     Dates: start: 20070605, end: 20070605
  3. ZIDOVUDINE [Concomitant]
     Route: 042
     Dates: start: 20070605, end: 20070605

REACTIONS (2)
  - PREGNANCY [None]
  - ULTRASOUND ANTENATAL SCREEN ABNORMAL [None]
